FAERS Safety Report 19415439 (Version 1)
Quarter: 2021Q2

REPORT INFORMATION
  Report Type: Spontaneous
  Country: US (occurrence: US)
  Receive Date: 20210615
  Receipt Date: 20210615
  Transmission Date: 20210717
  Serious: No
  Sender: FDA-Public Use
  Company Number: US-ALLERGAN-2110813US

PATIENT
  Age: 28 Year
  Sex: Female

DRUGS (1)
  1. KYBELLA [Suspect]
     Active Substance: DEOXYCHOLIC ACID
     Indication: PRODUCT USED FOR UNKNOWN INDICATION
     Dosage: UNK UNK, SINGLE
     Route: 058
     Dates: start: 20210310, end: 20210310

REACTIONS (2)
  - Wrong technique in product usage process [Unknown]
  - Arterial injury [Not Recovered/Not Resolved]

NARRATIVE: CASE EVENT DATE: 20210310
